FAERS Safety Report 8249788-2 (Version None)
Quarter: 2012Q2

REPORT INFORMATION
  Report Type: 
  Country: None (occurrence: None)
  Receive Date: 20120402
  Receipt Date: 20120325
  Transmission Date: 20120825
  Serious: Yes (Other)
  Sender: FDA-Public Use
  Company Number: PHHY2012BR025833

PATIENT
  Sex: Female

DRUGS (7)
  1. TEGRETOL [Suspect]
     Dates: start: 20120323
  2. CARBAMAZEPINE [Suspect]
     Dosage: 3 DF, DAILY
     Dates: start: 20120323
  3. OMEPRAZOLE [Suspect]
  4. DIOVAN [Suspect]
  5. DAFLON [Concomitant]
  6. CARVEDILOL [Concomitant]
     Dates: start: 20120305
  7. TRAMADOL HYDROCHLORIDE [Concomitant]
     Indication: PAIN
     Dosage: 1 DF, TID

REACTIONS (6)
  - TONGUE DISORDER [None]
  - HYPERSOMNIA [None]
  - APATHY [None]
  - VISUAL IMPAIRMENT [None]
  - PAIN [None]
  - BLOOD PRESSURE INCREASED [None]
